FAERS Safety Report 4863404-9 (Version None)
Quarter: 2005Q4

REPORT INFORMATION
  Report Type: 
  Country: None (occurrence: None)
  Receive Date: 20051222
  Receipt Date: 20041207
  Transmission Date: 20060501
  Serious: No
  Sender: FDA-Public Use
  Company Number: US-GLAXOSMITHKLINE-A0536586A

PATIENT
  Age: 41 Year
  Sex: Female

DRUGS (2)
  1. FLONASE [Suspect]
     Indication: SINUSITIS
     Dosage: 1SPR TWICE PER DAY
     Route: 045
     Dates: start: 20041203, end: 20041203
  2. AMOXICILLIN [Concomitant]

REACTIONS (3)
  - AGEUSIA [None]
  - ANOSMIA [None]
  - NAUSEA [None]
